FAERS Safety Report 7668592-7 (Version None)
Quarter: 2011Q3

REPORT INFORMATION
  Report Type: 
  Country: None (occurrence: None)
  Receive Date: 20110808
  Receipt Date: 20110808
  Transmission Date: 20111222
  Serious: Yes (Other)
  Sender: FDA-Public Use
  Company Number: None

PATIENT
  Sex: Male
  Weight: 61.2 kg

DRUGS (1)
  1. PROPOFOL [Suspect]
     Indication: SURGERY
     Dosage: 540 MG/HR
     Route: 042

REACTIONS (4)
  - HYPOTENSION [None]
  - POST PROCEDURAL COMPLICATION [None]
  - PROPOFOL INFUSION SYNDROME [None]
  - BRADYCARDIA [None]
